FAERS Safety Report 9650420 (Version 1)
Quarter: 2013Q4

REPORT INFORMATION
  Report Type: Report from Study
  Country: US (occurrence: US)
  Receive Date: 20131028
  Receipt Date: 20131028
  Transmission Date: 20140711
  Serious: Yes (Hospitalization)
  Sender: FDA-Public Use
  Company Number: US-MERCK-1310USA010268

PATIENT
  Age: 57 Year
  Sex: Male
  Weight: 113.7 kg

DRUGS (12)
  1. VORINOSTAT [Suspect]
     Indication: GLIOBLASTOMA
     Dosage: 400 MG, QD
     Route: 048
     Dates: start: 20130131, end: 2013
  2. VORINOSTAT [Suspect]
     Dosage: 400 MG, QD
     Route: 048
     Dates: start: 20130228, end: 20130302
  3. BEVACIZUMAB [Suspect]
     Dosage: 10 MG/KG, QOW
     Dates: start: 20130131, end: 2013
  4. BEVACIZUMAB [Suspect]
     Dosage: 10 MG/KG, QOW
     Dates: start: 20130228
  5. ALPRAZOLAM [Concomitant]
     Dosage: 0.5 MG, TID
     Route: 048
  6. HEXADROL TABLETS [Concomitant]
     Dosage: 4 MG, QD
     Route: 048
  7. DOCUSATE SODIUM [Concomitant]
     Dosage: 100 MG, QD
     Route: 048
  8. ENOXAPARIN SODIUM [Concomitant]
     Dosage: 0.4 ML, QD
     Route: 058
  9. LEVETIRACETAM [Concomitant]
     Dosage: 500 MG, TID
     Route: 048
  10. MIDODRINE HYDROCHLORIDE [Concomitant]
     Dosage: 5 MG, BID
     Route: 048
  11. PRILOSEC [Concomitant]
     Dosage: 20 MG, QD
     Route: 048
  12. IRON (UNSPECIFIED) [Concomitant]
     Dosage: 325 MG, QD
     Route: 048

REACTIONS (3)
  - Haemorrhage intracranial [Unknown]
  - Convulsion [Unknown]
  - Fall [Unknown]
